FAERS Safety Report 4683801-4 (Version None)
Quarter: 2005Q2

REPORT INFORMATION
  Report Type: 
  Country: None (occurrence: None)
  Receive Date: 20050602
  Receipt Date: 20050405
  Transmission Date: 20051028
  Serious: No
  Sender: FDA-Public Use
  Company Number: USA050495153

PATIENT
  Sex: Male

DRUGS (11)
  1. CYMBALTA [Suspect]
     Dosage: 30 MG
     Dates: start: 20050319
  2. METFORMIN [Concomitant]
  3. OXYCONTIN [Concomitant]
  4. NEURONTIN (GABAPENTIN PFIZER) [Concomitant]
  5. ZOCOR (SIMVASTATIN RATIOPHARM) [Concomitant]
  6. NITRO (GLYCERYL TRINITRATE) [Concomitant]
  7. LOTRIAL (ENALAPRIL) [Concomitant]
  8. ASPIRIN [Concomitant]
  9. ATENOLOL [Concomitant]
  10. POTASSIUM CHLORIDE [Concomitant]
  11. PAMELOR [Concomitant]

REACTIONS (2)
  - AMNESIA [None]
  - HALLUCINATION [None]
